FAERS Safety Report 9258188 (Version 1)
Quarter: 2013Q2

REPORT INFORMATION
  Report Type: Spontaneous
  Country: BR (occurrence: BR)
  Receive Date: 20130426
  Receipt Date: 20130426
  Transmission Date: 20140414
  Serious: Yes (Other)
  Sender: FDA-Public Use
  Company Number: BR-BRISTOL-MYERS SQUIBB COMPANY-18790550

PATIENT
  Sex: Female

DRUGS (1)
  1. APROZIDE [Suspect]
     Dosage: APROZIDE (IRBESARTAN+HYDROCHLOROTHIAZIDE)/300MG+12.5MG

REACTIONS (1)
  - Breast cancer [Unknown]
